FAERS Safety Report 7921616-1 (Version None)
Quarter: 2011Q4

REPORT INFORMATION
  Report Type: 
  Country: None (occurrence: None)
  Receive Date: 20111117
  Receipt Date: 20101122
  Transmission Date: 20120403
  Serious: Yes (Hospitalization, Other)
  Sender: FDA-Public Use
  Company Number: US-BRISTOL-MYERS SQUIBB COMPANY-15336977

PATIENT
  Age: 15 Year
  Sex: Female
  Weight: 109 kg

DRUGS (3)
  1. ZOFRAN [Concomitant]
  2. ETOPOSIDE [Suspect]
     Indication: EWING'S SARCOMA
     Dosage: ETOPOSIDE 225MG(110MG/M2) X 5 DAYS
     Route: 042
     Dates: start: 20100923, end: 20100923
  3. DEXAMETHASONE [Concomitant]

REACTIONS (2)
  - HYPERSENSITIVITY [None]
  - CARDIAC DISORDER [None]
